FAERS Safety Report 11157181 (Version 1)
Quarter: 2015Q2

REPORT INFORMATION
  Report Type: Spontaneous
  Country: US (occurrence: None)
  Receive Date: 20150601
  Receipt Date: 20150601
  Transmission Date: 20150821
  Serious: Yes (Other)
  Sender: FDA-Public Use
  Company Number: None

PATIENT
  Age: 38 Year
  Sex: Female
  Weight: 124.74 kg

DRUGS (16)
  1. LISINOPRIL. [Concomitant]
     Active Substance: LISINOPRIL
  2. TENORETIC [Concomitant]
     Active Substance: ATENOLOL\CHLORTHALIDONE
  3. LYRICA [Concomitant]
     Active Substance: PREGABALIN
  4. K-TAB [Concomitant]
     Active Substance: POTASSIUM CHLORIDE
  5. VITAMIN D3 [Concomitant]
     Active Substance: CHOLECALCIFEROL
  6. VITAMIN K [Concomitant]
     Active Substance: PHYTONADIONE
  7. VITAMIN [Concomitant]
     Active Substance: VITAMINS
  8. BI-PAP MACHINE [Concomitant]
  9. ULTRAM ER [Suspect]
     Active Substance: TRAMADOL HYDROCHLORIDE
     Indication: PAIN
     Route: 048
  10. ULTRAM [Suspect]
     Active Substance: TRAMADOL HYDROCHLORIDE
     Indication: PAIN
     Dosage: VARIED 300 MG T0 12.5 MG
     Route: 048
     Dates: start: 20150420, end: 20150520
  11. ULTRAM [Suspect]
     Active Substance: TRAMADOL HYDROCHLORIDE
     Indication: FIBROMYALGIA
     Dosage: VARIED 300 MG T0 12.5 MG
     Route: 048
     Dates: start: 20150420, end: 20150520
  12. CYMBALTA [Concomitant]
     Active Substance: DULOXETINE HYDROCHLORIDE
  13. ULTRAM ER [Suspect]
     Active Substance: TRAMADOL HYDROCHLORIDE
     Route: 048
  14. COD LIVER OIL [Concomitant]
     Active Substance: COD LIVER OIL
  15. GLUCOPHAGE [Concomitant]
     Active Substance: METFORMIN HYDROCHLORIDE
  16. GLUCOTROL [Concomitant]
     Active Substance: GLIPIZIDE

REACTIONS (13)
  - Headache [None]
  - Hot flush [None]
  - Anxiety [None]
  - Diarrhoea [None]
  - Gastrointestinal pain [None]
  - Nausea [None]
  - Pain [None]
  - Chills [None]
  - Anger [None]
  - Restless legs syndrome [None]
  - Drug withdrawal syndrome [None]
  - Insomnia [None]
  - Depression [None]

NARRATIVE: CASE EVENT DATE: 20150401
